FAERS Safety Report 7423105-X (Version None)
Quarter: 2011Q2

REPORT INFORMATION
  Report Type: 
  Country: None (occurrence: None)
  Receive Date: 20110414
  Receipt Date: 20110414
  Transmission Date: 20111010
  Serious: Yes (Hospitalization)
  Sender: FDA-Public Use
  Company Number: None

PATIENT
  Sex: Female
  Weight: 64.683 kg

DRUGS (13)
  1. ESOMEPRAZOLE MAGNESIUM (NEXIUM) [Concomitant]
  2. MARINOL [Concomitant]
  3. REGLAN [Concomitant]
  4. NORVASC [Concomitant]
  5. BISACODYL EC (DULCOLAX) [Concomitant]
  6. AUGMENTIN [Concomitant]
  7. PROCHLORPERAZINE TAB [Concomitant]
  8. NORCO [Concomitant]
  9. PAZOPANIB [Suspect]
     Indication: NON-SMALL CELL LUNG CANCER METASTATIC
     Dosage: 400 MG, 21 PILL ONCE DAILY ORAL
     Route: 048
     Dates: start: 20110210, end: 20110316
  10. PAZOPANIB [Suspect]
     Indication: NON-SMALL CELL LUNG CANCER METASTATIC
     Dosage: 400 MG, 21 PILL ONCE DAILY ORAL
     Route: 048
     Dates: start: 20110120, end: 20110201
  11. PAZOPANIB [Suspect]
     Indication: NON-SMALL CELL LUNG CANCER METASTATIC
     Dosage: 400 MG, 21 PILL ONCE DAILY ORAL
     Route: 048
     Dates: start: 20110324
  12. PAZOPANIB [Suspect]
     Indication: NON-SMALL CELL LUNG CANCER METASTATIC
     Dosage: 400 MG, 21 PILL ONCE DAILY ORAL
     Route: 048
     Dates: start: 20110112, end: 20110119
  13. CARBONATE-MAG HYDROXIDE (MYLANTA SUPREME) [Concomitant]

REACTIONS (2)
  - PNEUMONIA [None]
  - FEBRILE NEUTROPENIA [None]
